FAERS Safety Report 9149974 (Version 1)
Quarter: 2013Q1

REPORT INFORMATION
  Report Type: Spontaneous
  Country: GB (occurrence: None)
  Receive Date: 20130131
  Receipt Date: 20130131
  Transmission Date: 20140127
  Serious: Yes (Disabling, Other)
  Sender: FDA-Public Use
  Company Number: CL-469-2013

PATIENT
  Age: 32 Year
  Sex: Male

DRUGS (17)
  1. FLUCONAZOLE [Suspect]
     Indication: CANDIDA INFECTION
     Route: 048
     Dates: start: 20120601, end: 20121222
  2. AZITHROMYCIN [Concomitant]
  3. CALCICHEW D3 [Concomitant]
  4. CO-TRIMOXAZOLE [Concomitant]
  5. CYCLOSPORIN [Concomitant]
  6. FOSFOMYCIN [Concomitant]
  7. MEROPENEM [Concomitant]
  8. MULTIVITAMIN [Concomitant]
  9. MYCOPHENOLATE MOFETIL [Concomitant]
  10. OMEPRAZOLE [Concomitant]
  11. PREDNISOLONE [Concomitant]
  12. SIROLIMUS [Concomitant]
  13. RISEDRONATE [Concomitant]
  14. SYMBICORT [Concomitant]
  15. TACROLIMUS [Concomitant]
  16. TOBRAMYCIN [Concomitant]
  17. VITAMIN E SUBSTANCES [Concomitant]

REACTIONS (3)
  - Stereotypy [None]
  - Bruxism [None]
  - Neurotoxicity [None]
